FAERS Safety Report 24532549 (Version 2)
Quarter: 2024Q4

REPORT INFORMATION
  Report Type: Report from Study
  Country: US (occurrence: US)
  Receive Date: 20241022
  Receipt Date: 20241205
  Transmission Date: 20250115
  Serious: Yes (Other)
  Sender: ABBVIE
  Company Number: US-ABBVIE-5810026

PATIENT
  Age: 35 Year
  Sex: Female

DRUGS (2)
  1. RINVOQ [Suspect]
     Active Substance: UPADACITINIB
     Indication: Ankylosing spondylitis
     Dosage: LAST ADMINISTRATION DATE- 2024
     Route: 048
     Dates: start: 20230607
  2. RINVOQ [Suspect]
     Active Substance: UPADACITINIB
     Indication: Ankylosing spondylitis
     Route: 048
     Dates: start: 2024

REACTIONS (7)
  - Nasal septum deviation [Recovered/Resolved]
  - Ankylosing spondylitis [Recovered/Resolved]
  - Generalised oedema [Unknown]
  - Arthralgia [Unknown]
  - Respiratory disorder [Unknown]
  - Mouth breathing [Unknown]
  - Unevaluable event [Unknown]

NARRATIVE: CASE EVENT DATE: 20240101
